FAERS Safety Report 7583067-1 (Version None)
Quarter: 2011Q2

REPORT INFORMATION
  Report Type: 
  Country: None (occurrence: None)
  Receive Date: 20110527
  Receipt Date: 20101007
  Transmission Date: 20111010
  Serious: Yes (Hospitalization, Other)
  Sender: FDA-Public Use
  Company Number: US201004000722

PATIENT
  Age: 36 Year
  Sex: Male
  Weight: 145.1 kg

DRUGS (5)
  1. BYETTA [Suspect]
     Dosage: 10 UG, 2/D, SUBCUTANEOUS
     Route: 058
     Dates: start: 20080101, end: 20080401
  2. PRILOSEC [Concomitant]
  3. AZOR (ALPRAZOLAM) [Concomitant]
  4. EXTRA STRENGTH TYLENOL [Concomitant]
  5. EXENATIDE PEN (EXENATIDE PEN) [Concomitant]

REACTIONS (2)
  - ABDOMINAL PAIN [None]
  - PANCREATITIS [None]
